FAERS Safety Report 23266343 (Version 1)
Quarter: 2023Q4

REPORT INFORMATION
  Report Type: Spontaneous
  Country: IT (occurrence: None)
  Receive Date: 20231206
  Receipt Date: 20231206
  Transmission Date: 20240110
  Serious: Yes (Hospitalization, Other)
  Sender: FDA-Public Use
  Company Number: IT-HQ-20230050

PATIENT
  Age: 67 Year
  Sex: Male

DRUGS (27)
  1. MIDAZOLAM [Suspect]
     Active Substance: MIDAZOLAM
  2. LINEZOLID [Suspect]
     Active Substance: LINEZOLID
  3. HYDROXYCHLOROQUINE [Suspect]
     Active Substance: HYDROXYCHLOROQUINE
  4. PIPERACILLIN SODIUM\TAZOBACTAM SODIUM [Suspect]
     Active Substance: PIPERACILLIN SODIUM\TAZOBACTAM SODIUM
  5. LOPINAVIR\RITONAVIR [Suspect]
     Active Substance: LOPINAVIR\RITONAVIR
  6. ANAKINRA [Suspect]
     Active Substance: ANAKINRA
  7. PROPOFOL [Suspect]
     Active Substance: PROPOFOL
  8. FENTANYL [Suspect]
     Active Substance: FENTANYL\FENTANYL CITRATE
  9. CISATRACURIUM [Suspect]
     Active Substance: CISATRACURIUM
  10. VITAMIN B1 [Suspect]
     Active Substance: THIAMINE HYDROCHLORIDE
  11. IOPROMIDE [Suspect]
     Active Substance: IOPROMIDE
  12. OMEPRAZOLE [Concomitant]
     Active Substance: OMEPRAZOLE
  13. CEFTRIAXONE [Concomitant]
     Active Substance: CEFTRIAXONE\CEFTRIAXONE SODIUM
  14. FUROSEMIDE [Concomitant]
     Active Substance: FUROSEMIDE
  15. ENOXAPARIN [Concomitant]
     Active Substance: ENOXAPARIN
  16. QUETIAPINE [Concomitant]
     Active Substance: QUETIAPINE
  17. NOREPINEPHRINE [Concomitant]
     Active Substance: NOREPINEPHRINE
  18. ALPROSTADIL [Concomitant]
     Active Substance: ALPROSTADIL
  19. ETHACRYNIC ACID [Concomitant]
     Active Substance: ETHACRYNIC ACID
  20. LABETALOL [Concomitant]
     Active Substance: LABETALOL\LABETALOL HYDROCHLORIDE
  21. CLONIDINE [Concomitant]
     Active Substance: CLONIDINE
  22. ACETAZOLAMIDE [Concomitant]
     Active Substance: ACETAZOLAMIDE
  23. FLUVOXAMINE [Concomitant]
     Active Substance: FLUVOXAMINE
  24. PREDNISONE [Concomitant]
     Active Substance: PREDNISONE
  25. HYDROXYZINE [Concomitant]
     Active Substance: HYDROXYZINE HYDROCHLORIDE
  26. TIGECYCLINE [Concomitant]
     Active Substance: TIGECYCLINE
  27. DAPTOMYCIN [Concomitant]
     Active Substance: DAPTOMYCIN

REACTIONS (1)
  - Drug reaction with eosinophilia and systemic symptoms [Recovered/Resolved]
